FAERS Safety Report 7173701 (Version 3)
Quarter: 2019Q1

REPORT INFORMATION
  Report Type: Spontaneous
  Country: FR (occurrence: FR)
  Receive Date: 20091111
  Receipt Date: 20190221
  Transmission Date: 20190418
  Serious: Yes (Other)
  Sender: FDA-Public Use
  Company Number: FR-PFIZER INC-2009290183

PATIENT
  Age: 47 Year
  Sex: Male
  Weight: 76 kg

DRUGS (7)
  1. CHAMPIX [Suspect]
     Active Substance: VARENICLINE TARTRATE
     Indication: EX-TOBACCO USER
     Dosage: 2 MG, 1X/DAY
     Route: 048
     Dates: start: 20070205, end: 20070521
  2. DEDROGYL [Concomitant]
     Active Substance: CALCIFEDIOL
     Dosage: UNK
  3. EUCALCIC [Concomitant]
     Active Substance: CALCIUM CARBONATE
     Dosage: UNK
  4. TRIATEC [Concomitant]
     Dosage: UNK
  5. LESCOL [Concomitant]
     Active Substance: FLUVASTATIN SODIUM
     Dosage: UNK
  6. CHAMPIX [Suspect]
     Active Substance: VARENICLINE TARTRATE
     Dosage: 1 MG, 1X/DAY
     Dates: start: 20080119, end: 20080220
  7. SEROPRAM (CITALOPRAM HYDROBROMIDE) [Concomitant]
     Active Substance: CITALOPRAM HYDROBROMIDE
     Dosage: UNK

REACTIONS (4)
  - Flatulence [Unknown]
  - Disturbance in attention [Unknown]
  - Renal impairment [Unknown]
  - Depressive symptom [Unknown]

NARRATIVE: CASE EVENT DATE: 20070401
